FAERS Safety Report 9717928 (Version 1)
Quarter: 2013Q4

REPORT INFORMATION
  Report Type: Spontaneous
  Country: US (occurrence: US)
  Receive Date: 20131127
  Receipt Date: 20131127
  Transmission Date: 20140711
  Serious: Yes (Hospitalization, Other)
  Sender: FDA-Public Use
  Company Number: US-WATSON-2013-21383

PATIENT
  Age: 6 Year
  Sex: Female

DRUGS (3)
  1. MIDAZOLAM (UNKNOWN) [Suspect]
     Indication: AGITATION
     Dosage: 0.3 MG/KG, REPEATED DOSES
     Route: 042
  2. LORAZEPAM (WATSON LABORATORIES) [Suspect]
     Indication: AGITATION
     Dosage: 0.1 MG/KG, 2 DOSES
     Route: 042
  3. NORMAL SALINE [Concomitant]
     Indication: ACCIDENTAL EXPOSURE TO PRODUCT BY CHILD
     Dosage: UNK
     Route: 042

REACTIONS (6)
  - Paradoxical drug reaction [Recovered/Resolved]
  - Agitation [Recovered/Resolved]
  - Logorrhoea [Recovered/Resolved]
  - Psychomotor hyperactivity [Recovered/Resolved]
  - Aggression [Recovered/Resolved]
  - Condition aggravated [Recovered/Resolved]
